FAERS Safety Report 8616913-0 (Version None)
Quarter: 2012Q3

REPORT INFORMATION
  Report Type: 
  Country: None (occurrence: None)
  Receive Date: 20120823
  Receipt Date: 20120813
  Transmission Date: 20120928
  Serious: No
  Sender: FDA-Public Use
  Company Number: US-009507513-1208USA006038

PATIENT

DRUGS (1)
  1. NASONEX [Suspect]
     Indication: BLOOD CHOLESTEROL
     Dosage: UNK
     Route: 045
     Dates: start: 20100101

REACTIONS (1)
  - INSOMNIA [None]
